FAERS Safety Report 12768237 (Version 1)
Quarter: 2016Q3

REPORT INFORMATION
  Report Type: Spontaneous
  Country: HR (occurrence: HR)
  Receive Date: 20160921
  Receipt Date: 20160921
  Transmission Date: 20161109
  Serious: Yes (Hospitalization, Other)
  Sender: FDA-Public Use
  Company Number: HR-TEVA-692643ACC

PATIENT
  Sex: Female

DRUGS (3)
  1. NORMABEL [Suspect]
     Active Substance: DIAZEPAM
     Route: 048
  2. ELICEA [Suspect]
     Active Substance: ESCITALOPRAM OXALATE
     Route: 048
  3. LADIOMIL [Suspect]
     Active Substance: MAPROTILINE HYDROCHLORIDE
     Route: 048

REACTIONS (3)
  - Suicide attempt [Unknown]
  - Somnolence [Unknown]
  - Intentional overdose [Unknown]

NARRATIVE: CASE EVENT DATE: 2016
